FAERS Safety Report 7430309-9 (Version None)
Quarter: 2011Q2

REPORT INFORMATION
  Report Type: 
  Country: None (occurrence: None)
  Receive Date: 20110419
  Receipt Date: 20110419
  Transmission Date: 20111010
  Serious: No
  Sender: FDA-Public Use
  Company Number: None

PATIENT
  Age: 64 Year
  Sex: Male
  Weight: 58.9676 kg

DRUGS (1)
  1. CIPROFLOXACIN [Suspect]
     Indication: DIVERTICULITIS
     Dosage: 500 MG 2 TIMES DAY PO
     Route: 048
     Dates: start: 20110409, end: 20110418

REACTIONS (6)
  - MUSCULAR WEAKNESS [None]
  - BURNING SENSATION [None]
  - TONGUE DISCOLOURATION [None]
  - PARAESTHESIA [None]
  - DYSPNOEA [None]
  - OROPHARYNGEAL PAIN [None]
